FAERS Safety Report 25771881 (Version 2)
Quarter: 2025Q3

REPORT INFORMATION
  Report Type: Spontaneous
  Country: EU (occurrence: EU)
  Receive Date: 20250908
  Receipt Date: 20250919
  Transmission Date: 20251021
  Serious: Yes (Death, Life-Threatening, Hospitalization)
  Sender: ZYDUS PHARM
  Company Number: EU-MLMSERVICE-20250818-PI617558-00029-1

PATIENT

DRUGS (2)
  1. ACETAMINOPHEN [Suspect]
     Active Substance: ACETAMINOPHEN
     Indication: Suicidal ideation
     Route: 048
  2. MAGNESIUM STEARATE [Suspect]
     Active Substance: MAGNESIUM STEARATE
     Indication: Suicidal ideation
     Route: 048

REACTIONS (4)
  - Bezoar [Fatal]
  - Toxicity to various agents [Fatal]
  - Reaction to excipient [Fatal]
  - Intentional overdose [Fatal]
